FAERS Safety Report 10450148 (Version 1)
Quarter: 2014Q3

REPORT INFORMATION
  Report Type: Spontaneous
  Country: IN (occurrence: IN)
  Receive Date: 20140912
  Receipt Date: 20140912
  Transmission Date: 20150326
  Serious: Yes (Other)
  Sender: FDA-Public Use
  Company Number: IN-ALLERGAN-1419179US

PATIENT
  Age: 58 Year
  Sex: Female

DRUGS (6)
  1. PRED FORTE [Suspect]
     Active Substance: PREDNISOLONE ACETATE
     Dosage: 1 GTT, BID  (LEFT EYE)
     Route: 047
  2. PRED FORTE [Suspect]
     Active Substance: PREDNISOLONE ACETATE
     Dosage: 1 GTT, Q1HR
     Route: 047
     Dates: start: 20140813
  3. NEVANAC [Suspect]
     Active Substance: NEPAFENAC
     Indication: PRODUCT USED FOR UNKNOWN INDICATION
     Dosage: 1 GTT, TID  (LEFT EYE)
     Route: 047
     Dates: start: 20140625
  4. PRED FORTE [Suspect]
     Active Substance: PREDNISOLONE ACETATE
     Indication: PRODUCT USED FOR UNKNOWN INDICATION
     Dosage: 1 GTT, QID (LEFT EYE)
     Route: 047
     Dates: start: 20140625
  5. PRED FORTE [Suspect]
     Active Substance: PREDNISOLONE ACETATE
     Dosage: 1 GTT, QD  (LEFT EYE)
     Route: 047
  6. PRED FORTE [Suspect]
     Active Substance: PREDNISOLONE ACETATE
     Dosage: 1 GTT, TID  (LEFT EYE)

REACTIONS (4)
  - Anterior chamber cell [Unknown]
  - Eye discharge [Unknown]
  - Vitritis [Unknown]
  - Visual impairment [Unknown]
